FAERS Safety Report 23308392 (Version 1)
Quarter: 2023Q4

REPORT INFORMATION
  Report Type: Spontaneous
  Country: US (occurrence: US)
  Receive Date: 20231218
  Receipt Date: 20231218
  Transmission Date: 20240110
  Serious: No
  Sender: FDA-Public Use
  Company Number: US-SA-SAC20231213000031

PATIENT
  Age: 64 Year
  Sex: Female

DRUGS (1)
  1. DUPIXENT [Suspect]
     Active Substance: DUPILUMAB
     Indication: Dermatitis atopic
     Dosage: 300 MG, QOW
     Route: 058
     Dates: start: 20231010

REACTIONS (8)
  - Paraesthesia [Unknown]
  - Neuralgia [Unknown]
  - Eye pain [Unknown]
  - Lacrimation increased [Unknown]
  - Muscle spasms [Unknown]
  - Chest pain [Unknown]
  - Vision blurred [Unknown]
  - Foot operation [Recovering/Resolving]

NARRATIVE: CASE EVENT DATE: 20230101
